FAERS Safety Report 6086838-6 (Version None)
Quarter: 2009Q1

REPORT INFORMATION
  Report Type: 
  Country: None (occurrence: None)
  Receive Date: 20090223
  Receipt Date: 20090209
  Transmission Date: 20090719
  Serious: Yes (Hospitalization, Other)
  Sender: FDA-Public Use
  Company Number: CA-ELI_LILLY_AND_COMPANY-CA200902002293

PATIENT
  Age: 89 Year
  Sex: Female

DRUGS (9)
  1. FORTEO [Suspect]
     Indication: OSTEOPOROSIS
     Dosage: 20 UG, DAILY (1/D)
     Route: 058
     Dates: start: 20081203, end: 20090101
  2. PANTOLOC                           /01263201/ [Concomitant]
  3. WARFARIN SODIUM [Concomitant]
  4. VITAMINS NOS [Concomitant]
  5. CALCIUM [Concomitant]
  6. VITAMIN D [Concomitant]
  7. NORVASC [Concomitant]
  8. INDERAL [Concomitant]
  9. ALTACE [Concomitant]

REACTIONS (2)
  - FALL [None]
  - PELVIC FRACTURE [None]
